FAERS Safety Report 14195243 (Version 1)
Quarter: 2017Q4

REPORT INFORMATION
  Report Type: Spontaneous
  Country: FR (occurrence: FR)
  Receive Date: 20171116
  Receipt Date: 20171116
  Transmission Date: 20180321
  Serious: Yes (Hospitalization)
  Sender: FDA-Public Use
  Company Number: FR-SA-2017SA221274

PATIENT
  Age: 80 Year
  Sex: Male

DRUGS (18)
  1. LOVENOX [Concomitant]
     Active Substance: ENOXAPARIN SODIUM
     Route: 065
  2. RIFINAH [Suspect]
     Active Substance: ISONIAZID\RIFAMPIN
     Indication: TUBERCULOSIS
     Route: 048
     Dates: start: 20171006, end: 20171024
  3. CIPROFLOXACIN. [Suspect]
     Active Substance: CIPROFLOXACIN
     Indication: INFECTION
     Route: 048
     Dates: start: 20171001, end: 20171005
  4. MIANSERIN [Concomitant]
     Active Substance: MIANSERIN
     Dosage: 0-0-1
     Route: 065
  5. PARACETAMOL [Concomitant]
     Active Substance: ACETAMINOPHEN
     Dosage: 1-1-1-1
     Route: 042
  6. ZOPICLONE [Concomitant]
     Active Substance: ZOPICLONE
     Dosage: IN THE EVENING
     Route: 065
  7. TRIFLUCAN [Suspect]
     Active Substance: FLUCONAZOLE
     Indication: CANDIDA INFECTION
     Route: 048
     Dates: start: 20171011, end: 20171020
  8. ATORVASTATIN [Concomitant]
     Active Substance: ATORVASTATIN
     Dosage: L-M-V 0-0-1
     Route: 065
  9. KARDEGIC [Concomitant]
     Active Substance: ASPIRIN DL-LYSINE
     Dosage: 1 / D
     Route: 065
     Dates: end: 20170823
  10. TAZOBACTAM/PIPERACILLIN [Suspect]
     Active Substance: PIPERACILLIN SODIUM\TAZOBACTAM SODIUM
     Indication: INFECTION
     Route: 042
     Dates: start: 20171001, end: 20171005
  11. MYAMBUTOL [Suspect]
     Active Substance: ETHAMBUTOL HYDROCHLORIDE
     Indication: TUBERCULOSIS
     Route: 048
     Dates: start: 20171006, end: 20171024
  12. AUGMENTIN [Suspect]
     Active Substance: AMOXICILLIN\CLAVULANATE POTASSIUM
     Indication: INFECTION
     Route: 048
     Dates: start: 20170929, end: 20171001
  13. VANCOMYCINE SANDOZ [Suspect]
     Active Substance: VANCOMYCIN
     Indication: INFECTION
     Route: 048
     Dates: start: 20171001, end: 20171005
  14. OXAZEPAM. [Concomitant]
     Active Substance: OXAZEPAM
     Dosage: 0-0-1
     Route: 065
  15. EZETROL [Concomitant]
     Active Substance: EZETIMIBE
     Dosage: 0-0-1
     Route: 065
  16. PANTOPRAZOLE [Suspect]
     Active Substance: PANTOPRAZOLE
     Indication: TUBERCULOSIS
     Route: 048
     Dates: start: 20171004, end: 20171022
  17. BISOPROLOL [Concomitant]
     Active Substance: BISOPROLOL
     Dosage: 1-0-0
     Route: 065
  18. LANSOPRAZOLE. [Concomitant]
     Active Substance: LANSOPRAZOLE
     Dosage: 1-0-0
     Route: 065

REACTIONS (3)
  - Dermatitis exfoliative [Recovering/Resolving]
  - Petechiae [Recovering/Resolving]
  - Purpura [Recovering/Resolving]

NARRATIVE: CASE EVENT DATE: 20171013
